FAERS Safety Report 4358024-9 (Version None)
Quarter: 2004Q2

REPORT INFORMATION
  Report Type: 
  Country: None (occurrence: None)
  Receive Date: 20040510
  Receipt Date: 20040429
  Transmission Date: 20050107
  Serious: No
  Sender: FDA-Public Use
  Company Number: 2004UW09186

PATIENT
  Age: 84 Year
  Sex: Male

DRUGS (4)
  1. CASODEX [Suspect]
     Indication: PROSTATE CANCER
     Dates: start: 20040101
  2. LUPRON [Suspect]
     Indication: PROSTATE CANCER
     Dates: start: 20040101
  3. BISOPROLOL FUMARATE AND HYDROCHLOROTHIAZIDE [Concomitant]
  4. UROXATRAL [Concomitant]

REACTIONS (3)
  - CARDIAC DISORDER [None]
  - FATIGUE [None]
  - HOT FLUSH [None]
